FAERS Safety Report 10940357 (Version 2)
Quarter: 2015Q2

REPORT INFORMATION
  Report Type: Spontaneous
  Country: US (occurrence: US)
  Receive Date: 20150322
  Receipt Date: 20150525
  Transmission Date: 20150821
  Serious: No
  Sender: FDA-Public Use
  Company Number: US-JNJFOC-20140508180

PATIENT
  Age: 63 Year
  Sex: Female
  Weight: 53.52 kg

DRUGS (2)
  1. NUCYNTA ER [Suspect]
     Active Substance: TAPENTADOL HYDROCHLORIDE
     Indication: LUMBAR SPINAL STENOSIS
     Dosage: TWICE A DAY
     Route: 048
     Dates: start: 20140421
  2. NUCYNTA ER [Suspect]
     Active Substance: TAPENTADOL HYDROCHLORIDE
     Indication: LUMBAR SPINAL STENOSIS
     Dosage: ONCE DAILY
     Route: 048
     Dates: start: 201401, end: 2014

REACTIONS (2)
  - Dizziness [Recovered/Resolved]
  - Drug ineffective [Unknown]

NARRATIVE: CASE EVENT DATE: 201401
